FAERS Safety Report 7247231-3 (Version None)
Quarter: 2011Q1

REPORT INFORMATION
  Report Type: 
  Country: None (occurrence: None)
  Receive Date: 20110127
  Receipt Date: 20110119
  Transmission Date: 20110831
  Serious: Yes (Other)
  Sender: FDA-Public Use
  Company Number: DE-SANOFI-AVENTIS-2011SA003456

PATIENT
  Age: 57 Year
  Sex: Male

DRUGS (1)
  1. CICLOPIROX WINTHROP NAGELLACK [Suspect]
     Route: 065
     Dates: start: 20101001

REACTIONS (1)
  - BLOOD TEST ABNORMAL [None]
